FAERS Safety Report 5341065-2 (Version None)
Quarter: 2007Q2

REPORT INFORMATION
  Report Type: 
  Country: None (occurrence: None)
  Receive Date: 20070530
  Receipt Date: 20070517
  Transmission Date: 20071010
  Serious: Yes (Hospitalization)
  Sender: FDA-Public Use
  Company Number: 156717USA

PATIENT
  Age: 65 Year
  Sex: Female

DRUGS (2)
  1. CITALOPRAM HYDROBROMIDE [Suspect]
     Indication: DEPRESSION
  2. FENTANYL [Suspect]
     Indication: BACK PAIN
     Dosage: 25 UG/H, TOPICAL
     Route: 061

REACTIONS (13)
  - AGGRESSION [None]
  - AGITATION [None]
  - BACK PAIN [None]
  - BLOOD ALKALINE PHOSPHATASE INCREASED [None]
  - CONFUSIONAL STATE [None]
  - DRUG INTERACTION [None]
  - GAIT DISTURBANCE [None]
  - HYPERREFLEXIA [None]
  - MYOCLONUS [None]
  - RETROPERITONEAL HAEMORRHAGE [None]
  - SEROTONIN SYNDROME [None]
  - TACHYCARDIA [None]
  - TREMOR [None]
